FAERS Safety Report 12673447 (Version 1)
Quarter: 2016Q3

REPORT INFORMATION
  Report Type: Spontaneous
  Country: US (occurrence: US)
  Receive Date: 20160822
  Receipt Date: 20160822
  Transmission Date: 20161109
  Serious: Yes (Other)
  Sender: FDA-Public Use
  Company Number: US-BAXALTA-2016BLT005929

PATIENT

DRUGS (1)
  1. GAMMAGARD LIQUID [Suspect]
     Active Substance: HUMAN IMMUNOGLOBULIN G
     Indication: PRODUCT USED FOR UNKNOWN INDICATION
     Dosage: 4 G, UNK
     Route: 042
     Dates: end: 201510

REACTIONS (6)
  - Hypersensitivity [Unknown]
  - Chest pain [Unknown]
  - Dyspnoea [Unknown]
  - Pyrexia [Unknown]
  - Oral mucosal blistering [Unknown]
  - Oesophageal mucosal blister [Unknown]

NARRATIVE: CASE EVENT DATE: 201510
